FAERS Safety Report 10564662 (Version 8)
Quarter: 2016Q1

REPORT INFORMATION
  Report Type: Report from Study
  Country: CN (occurrence: CN)
  Receive Date: 20141104
  Receipt Date: 20160321
  Transmission Date: 20160525
  Serious: Yes (Hospitalization)
  Sender: FDA-Public Use
  Company Number: CN-ROCHE-1481873

PATIENT
  Age: 65 Year
  Sex: Male
  Weight: 65 kg

DRUGS (7)
  1. OBINUTUZUMAB [Suspect]
     Active Substance: OBINUTUZUMAB
     Indication: DIFFUSE LARGE B-CELL LYMPHOMA
     Dosage: DOSE AND FORM OF ADMINISTRATION AS PER PROTOCOL?MOST RECENT DOSE: CONCENTRATION 4 MG/ML, VOLUME 250
     Route: 042
     Dates: start: 20130918
  2. CYCLOPHOSPHAMIDE. [Suspect]
     Active Substance: CYCLOPHOSPHAMIDE
     Indication: DIFFUSE LARGE B-CELL LYMPHOMA
     Dosage: DOSE AND FORM OF ADMINISTRATION AS PER PROTOCOL?MOST RECENT DOSE: 1335 MG, 31/OCT/2013
     Route: 042
     Dates: start: 20130919
  3. DOXORUBICIN [Suspect]
     Active Substance: DOXORUBICIN
     Indication: DIFFUSE LARGE B-CELL LYMPHOMA
     Dosage: DOSE AND FORM OF ADMINISTRATION AS PER PROTOCOL?MOST RECENT DOSE: 89 MG, 31/OCT/2013
     Route: 042
     Dates: start: 20130919
  4. VINCRISTINE [Suspect]
     Active Substance: VINCRISTINE
     Indication: DIFFUSE LARGE B-CELL LYMPHOMA
     Dosage: DOSE AND FORM OF ADMINISTRATION AS PER PROTOCOL?MOST RECENT DOSE: 2 MG, 31/OCT/2013
     Route: 040
     Dates: start: 20130919
  5. PREDNISONE. [Suspect]
     Active Substance: PREDNISONE
     Indication: DIFFUSE LARGE B-CELL LYMPHOMA
     Dosage: DOSE AS PER PROTOCOL?MOST RECENT DOSE: 100 MG, 4/NOV/2013
     Route: 048
     Dates: start: 20130919
  6. ZYBAN [Concomitant]
     Active Substance: BUPROPION HYDROCHLORIDE
     Route: 065
     Dates: start: 20130920, end: 20130920
  7. POTASSIUM CHLORIDE. [Concomitant]
     Active Substance: POTASSIUM CHLORIDE
     Route: 065
     Dates: start: 20130920, end: 20130920

REACTIONS (2)
  - Emphysema [Recovered/Resolved]
  - Interstitial lung disease [Recovered/Resolved]

NARRATIVE: CASE EVENT DATE: 20131009
